FAERS Safety Report 5038421-9 (Version None)
Quarter: 2006Q2

REPORT INFORMATION
  Report Type: 
  Country: None (occurrence: None)
  Receive Date: 20060626
  Receipt Date: 20060626
  Transmission Date: 20061013
  Serious: Yes (Life-Threatening, Hospitalization)
  Sender: FDA-Public Use
  Company Number: None

PATIENT
  Age: 53 Year
  Sex: Male
  Weight: 90.7194 kg

DRUGS (1)
  1. LEXAPRO [Suspect]
     Indication: DRUG THERAPY
     Dosage: 20 MG ONCE A DAY PO
     Route: 048
     Dates: start: 20050805, end: 20060614

REACTIONS (1)
  - PLATELET COUNT DECREASED [None]
